FAERS Safety Report 21885844 (Version 1)
Quarter: 2023Q1

REPORT INFORMATION
  Report Type: Spontaneous
  Country: US (occurrence: US)
  Receive Date: 20230119
  Receipt Date: 20230119
  Transmission Date: 20230418
  Serious: Yes (Death)
  Sender: FDA-Public Use
  Company Number: US-PFIZER INC-202200415618

PATIENT
  Age: 81 Year
  Sex: Male
  Weight: 59.87 kg

DRUGS (4)
  1. VYNDAMAX [Suspect]
     Active Substance: TAFAMIDIS
     Indication: Amyloidosis
     Dosage: 62 MG
  2. VYNDAMAX [Suspect]
     Active Substance: TAFAMIDIS
     Dosage: 61 MG, DAILY (61MG QD)
  3. ELIQUIS [Concomitant]
     Active Substance: APIXABAN
     Dosage: UNK
  4. NORTHERA [Concomitant]
     Active Substance: DROXIDOPA
     Indication: Blood pressure abnormal
     Dosage: UNK

REACTIONS (2)
  - Death [Fatal]
  - Wrong strength [Unknown]
